FAERS Safety Report 12681915 (Version 1)
Quarter: 2016Q3

REPORT INFORMATION
  Report Type: Spontaneous
  Country: US (occurrence: US)
  Receive Date: 20160824
  Receipt Date: 20160824
  Transmission Date: 20161109
  Serious: No
  Sender: FDA-Public Use
  Company Number: US-ACTELION-A-US2015-129287

PATIENT
  Age: 72 Year
  Sex: Female

DRUGS (1)
  1. TRACLEER [Suspect]
     Active Substance: BOSENTAN
     Indication: PULMONARY ARTERIAL HYPERTENSION
     Dosage: UNK
     Route: 048

REACTIONS (8)
  - Dysphonia [Unknown]
  - Head discomfort [Unknown]
  - Nasal congestion [Unknown]
  - Bronchitis [Unknown]
  - Nasopharyngitis [Unknown]
  - Secretion discharge [Unknown]
  - Headache [Unknown]
  - Cough [Unknown]
